FAERS Safety Report 17269959 (Version 4)
Quarter: 2020Q1

REPORT INFORMATION
  Report Type: Spontaneous
  Country: US (occurrence: US)
  Receive Date: 20200114
  Receipt Date: 20200227
  Transmission Date: 20200409
  Serious: Yes (Hospitalization)
  Sender: FDA-Public Use
  Company Number: US-VERASTEM-2019-00308

PATIENT

DRUGS (2)
  1. COPIKTRA [Suspect]
     Active Substance: DUVELISIB
     Dosage: 25 MG, BID
     Route: 048
     Dates: start: 2020
  2. COPIKTRA [Suspect]
     Active Substance: DUVELISIB
     Indication: NON-HODGKIN^S LYMPHOMA
     Dosage: 25 MG, BID
     Route: 048
     Dates: start: 20191023, end: 20191227

REACTIONS (13)
  - Sinusitis [Recovered/Resolved]
  - Abdominal pain [Unknown]
  - Haematoma [Recovering/Resolving]
  - Product dose omission [Unknown]
  - Product use in unapproved indication [Not Recovered/Not Resolved]
  - Pyrexia [Unknown]
  - Kidney infection [Recovered/Resolved]
  - Diarrhoea [Recovered/Resolved]
  - Muscle spasms [Unknown]
  - Fatigue [Recovered/Resolved]
  - Nausea [Recovering/Resolving]
  - Cholecystectomy [Recovered/Resolved]
  - Dyspepsia [Recovered/Resolved]

NARRATIVE: CASE EVENT DATE: 2019
